FAERS Safety Report 5916301-1 (Version None)
Quarter: 2008Q4

REPORT INFORMATION
  Report Type: 
  Country: None (occurrence: None)
  Receive Date: 20081013
  Receipt Date: 20081007
  Transmission Date: 20090506
  Serious: Yes (Other)
  Sender: FDA-Public Use
  Company Number: PHEH2008US08455

PATIENT
  Sex: Male

DRUGS (2)
  1. DIOVAN HCT [Suspect]
     Dosage: 320 VALSARTAN / 25 MG HCTZ
  2. DIOVAN HCT [Suspect]
     Dosage: 1/2 OF 160

REACTIONS (3)
  - BLOOD ELECTROLYTES DECREASED [None]
  - CHILLS [None]
  - HEART RATE DECREASED [None]
